FAERS Safety Report 8210199-7 (Version None)
Quarter: 2012Q1

REPORT INFORMATION
  Report Type: 
  Country: None (occurrence: None)
  Receive Date: 20120314
  Receipt Date: 20110908
  Transmission Date: 20120608
  Serious: No
  Sender: FDA-Public Use
  Company Number: US-ASTRAZENECA-2011SE54228

PATIENT
  Age: 66 Year
  Sex: Female

DRUGS (7)
  1. TOPROL-XL [Suspect]
     Route: 048
  2. FELODIPINE [Concomitant]
  3. TRETINOIN CR [Concomitant]
  4. DERMA-SMOOTHE/FS [Concomitant]
  5. BETAMETHASONE [Concomitant]
  6. TRIAMINOLINE [Concomitant]
  7. ATACAND [Concomitant]

REACTIONS (3)
  - DRUG HYPERSENSITIVITY [None]
  - OEDEMA PERIPHERAL [None]
  - SWELLING [None]
